FAERS Safety Report 9829117 (Version 3)
Quarter: 2014Q3

REPORT INFORMATION
  Report Type: Spontaneous
  Country: US (occurrence: US)
  Receive Date: 20140119
  Receipt Date: 20140724
  Transmission Date: 20150326
  Serious: Yes (Hospitalization, Other)
  Sender: FDA-Public Use
  Company Number: US-009507513-1401USA004758

PATIENT
  Sex: Female

DRUGS (1)
  1. NUVARING [Suspect]
     Active Substance: ETHINYL ESTRADIOL\ETONOGESTREL
     Indication: PRODUCT USED FOR UNKNOWN INDICATION
     Dosage: UNK
     Route: 067
     Dates: start: 201111, end: 20120215

REACTIONS (12)
  - Drug hypersensitivity [Unknown]
  - Hyperlipidaemia [Unknown]
  - Hypothyroidism [Unknown]
  - Transient ischaemic attack [Unknown]
  - Migraine [Unknown]
  - Visual impairment [Not Recovered/Not Resolved]
  - Hypertension [Unknown]
  - Ischaemic stroke [Unknown]
  - Migraine with aura [Unknown]
  - Urticaria [Unknown]
  - Hernia repair [Unknown]
  - Blood triglycerides increased [Unknown]

NARRATIVE: CASE EVENT DATE: 20120214
